FAERS Safety Report 18350264 (Version 3)
Quarter: 2021Q1

REPORT INFORMATION
  Report Type: Report from Study
  Country: CA (occurrence: CA)
  Receive Date: 20201006
  Receipt Date: 20210323
  Transmission Date: 20210419
  Serious: Yes (Hospitalization, Other)
  Sender: FDA-Public Use
  Company Number: CA-SHIRE-CA201942681

PATIENT
  Age: 69 Year
  Sex: Male
  Weight: 74.83 kg

DRUGS (17)
  1. TEDUGLUTIDE [Suspect]
     Active Substance: TEDUGLUTIDE
     Indication: SHORT-BOWEL SYNDROME
     Dosage: 1.80 MILLIGRAM, 1X/DAY:QD
     Route: 065
     Dates: start: 20190208
  2. SUBOXONE [Concomitant]
     Active Substance: BUPRENORPHINE HYDROCHLORIDE\NALOXONE HYDROCHLORIDE
     Indication: PRODUCT USED FOR UNKNOWN INDICATION
     Dosage: 10 MILLIGRAM, QD
     Route: 048
     Dates: start: 201701
  3. VITAMIN D3 [Concomitant]
     Active Substance: CHOLECALCIFEROL
     Indication: PRODUCT USED FOR UNKNOWN INDICATION
     Dosage: 1000 INTERNATIONAL UNIT, QD
     Route: 065
     Dates: start: 202005
  4. TEDUGLUTIDE [Suspect]
     Active Substance: TEDUGLUTIDE
     Indication: SHORT-BOWEL SYNDROME
     Dosage: 1.80 MILLIGRAM, 1X/DAY:QD
     Route: 065
     Dates: start: 20190208
  5. TEDUGLUTIDE [Suspect]
     Active Substance: TEDUGLUTIDE
     Indication: SHORT-BOWEL SYNDROME
     Dosage: 1.80 MILLIGRAM, 1X/DAY:QD
     Route: 065
     Dates: start: 20190208
  6. TPN [AMINO ACIDS NOS;CARBOHYDRATES NOS;MINERALS NOS;VITAMINS NOS] [Concomitant]
     Active Substance: AMINO ACIDS\CARBOHYDRATES\MINERALS\VITAMINS
     Indication: PRODUCT USED FOR UNKNOWN INDICATION
     Dosage: 3000 MILLILITER, 7/7 DAYS OVER 10 HOURS
     Route: 065
  7. NORMAL SALINE [Concomitant]
     Active Substance: SODIUM CHLORIDE
     Indication: PRODUCT USED FOR UNKNOWN INDICATION
     Dosage: UNK, OVER 3 TO 4 HOURS
     Route: 042
  8. TEDUGLUTIDE [Suspect]
     Active Substance: TEDUGLUTIDE
     Dosage: UNK UNK, UNKNOWN
     Route: 065
     Dates: start: 20200317, end: 20201001
  9. RAMIPRIL. [Concomitant]
     Active Substance: RAMIPRIL
     Indication: PRODUCT USED FOR UNKNOWN INDICATION
     Dosage: 2.5 MILLIGRAM, QD
     Route: 065
     Dates: end: 20200319
  10. VITAMIN E [Concomitant]
     Active Substance: .ALPHA.-TOCOPHEROL
     Indication: MUSCLE SPASMS
     Dosage: 400 INTERNATIONAL UNIT, QD
     Route: 065
     Dates: start: 202005
  11. SOLYSTAT [Concomitant]
     Indication: HYPERKALAEMIA
     Dosage: UNK UNK, QD
     Route: 065
     Dates: end: 20190702
  12. AMLODIPINE [Concomitant]
     Active Substance: AMLODIPINE BESYLATE
     Indication: PRODUCT USED FOR UNKNOWN INDICATION
     Dosage: UNK
     Route: 065
     Dates: start: 20200319
  13. TEDUGLUTIDE [Suspect]
     Active Substance: TEDUGLUTIDE
     Indication: SHORT-BOWEL SYNDROME
     Dosage: 1.80 MILLIGRAM, 1X/DAY:QD
     Route: 065
     Dates: start: 20190208
  14. TEDUGLUTIDE [Suspect]
     Active Substance: TEDUGLUTIDE
     Dosage: UNK UNK, UNKNOWN
     Route: 065
     Dates: start: 20200317, end: 20201001
  15. TEDUGLUTIDE [Suspect]
     Active Substance: TEDUGLUTIDE
     Dosage: UNK UNK, UNKNOWN
     Route: 065
     Dates: start: 20200317, end: 20201001
  16. TEDUGLUTIDE [Suspect]
     Active Substance: TEDUGLUTIDE
     Dosage: UNK UNK, UNKNOWN
     Route: 065
     Dates: start: 20200317, end: 20201001
  17. MELATONIN [Concomitant]
     Active Substance: MELATONIN
     Indication: SLEEP DISORDER
     Dosage: 5 MILLIGRAM, HS
     Dates: start: 202005

REACTIONS (28)
  - Vascular device infection [Unknown]
  - Loss of personal independence in daily activities [Unknown]
  - Asthenia [Not Recovered/Not Resolved]
  - Urine output increased [Not Recovered/Not Resolved]
  - Abdominal distension [Recovering/Resolving]
  - Discomfort [Not Recovered/Not Resolved]
  - Pain [Not Recovered/Not Resolved]
  - Gastrointestinal inflammation [Not Recovered/Not Resolved]
  - Blood potassium abnormal [Unknown]
  - Muscle spasms [Unknown]
  - Confusional state [Not Recovered/Not Resolved]
  - Renal impairment [Unknown]
  - Glomerular filtration rate decreased [Not Recovered/Not Resolved]
  - Diarrhoea [Unknown]
  - Nausea [Not Recovered/Not Resolved]
  - Hypophagia [Not Recovered/Not Resolved]
  - Malaise [Not Recovered/Not Resolved]
  - Abdominal mass [Unknown]
  - Blood glucose fluctuation [Unknown]
  - Blood creatinine increased [Unknown]
  - Fatigue [Unknown]
  - Blood creatinine increased [Not Recovered/Not Resolved]
  - Blood potassium increased [Not Recovered/Not Resolved]
  - Gastrointestinal stoma output abnormal [Not Recovered/Not Resolved]
  - Chest discomfort [Recovered/Resolved]
  - Feeling abnormal [Not Recovered/Not Resolved]
  - Abdominal hernia obstructive [Not Recovered/Not Resolved]
  - Dehydration [Unknown]

NARRATIVE: CASE EVENT DATE: 20191130
